FAERS Safety Report 7949319-8 (Version None)
Quarter: 2011Q4

REPORT INFORMATION
  Report Type: 
  Country: None (occurrence: None)
  Receive Date: 20111125
  Receipt Date: 20111115
  Transmission Date: 20120403
  Serious: Yes (Death, Life-Threatening, Hospitalization, Disabling, Other)
  Sender: FDA-Public Use
  Company Number: US-2011-10125

PATIENT
  Age: 54 Year
  Sex: Male

DRUGS (18)
  1. BENADRYL (DIPHENHYDRAMINE HYDROCHLORIDE) 02/24/2011 TO 02/27/2011 [Concomitant]
  2. ROPINIROLE GENERICS (ROPINIROLE HYDROCHLORIDE) 02/17/2011 TO 03/02/201 [Concomitant]
  3. MEROPENEM (MEROPENEM) 02/25/2011 TO 03/10/2011 [Concomitant]
  4. FLUCONAZOLE (FLUCONAZOLE) 02/23/2011 TO 03/13/2011 [Concomitant]
  5. FOLIC ACID (FOLIC ACID) 02/23/2011 TO 03/13/2011 [Concomitant]
  6. VELCADE (BORTEZOMIB) 02/21/2011 TO 02/21/2011 [Concomitant]
  7. MULTIVITAMIN (ASCORBIC ACID, BIOTIN, CALCIUM PANTOTHENATE, CYANOCOBALA [Concomitant]
  8. DEXTROMETHORPHAN (DEXTROMETHORPHAN) 02/25/2011 TO ONGOING [Concomitant]
  9. FILGRASTIM (FILGRASTIM) 02/27/2011 TO 03/05/2011 [Concomitant]
  10. ACYCLOVIR (ACICLOVIR) 02/23/2011 TO 03/13/2011 [Concomitant]
  11. ACETAMINOPHEN (PARACETAMOL) 02/25/2011 TO 03/09/2011 [Concomitant]
  12. LORATADINE (LORATADINE) 02/25/2011 TO 03/02/2011 [Concomitant]
  13. PSYLLIUM (PSYLLIUM) 02/27/2011 TO ONGOING [Concomitant]
  14. BUSULFAN [Suspect]
     Indication: STEM CELL TRANSPLANT
     Dosage: 69 MG MILLIGRAM(S), SUSPECT MEDICATION #1: 69 MG MILLIGRAM(S), DAILY DOSE, INTRAVENOUS 299 MG MILLIG
     Route: 042
     Dates: start: 20110210, end: 20110210
  15. BUSULFAN [Suspect]
     Indication: STEM CELL TRANSPLANT
     Dosage: 69 MG MILLIGRAM(S), SUSPECT MEDICATION #1: 69 MG MILLIGRAM(S), DAILY DOSE, INTRAVENOUS 299 MG MILLIG
     Route: 042
     Dates: start: 20110217, end: 20110220
  16. AMLODIPINE (AMLODIPINE BESILATE) 02/26/2011 TO 03/02/2011 [Concomitant]
  17. INSULIN LISPRO (INSULIN LISPRO) 02/22/2011 TO 03/07/2011 [Concomitant]
  18. PANTOPRAZOLE (PANTOPRAZOLE SODIUM) 02/18/2011 TO 03/09/2011 [Concomitant]

REACTIONS (8)
  - PNEUMONITIS [None]
  - ACUTE RESPIRATORY DISTRESS SYNDROME [None]
  - HYPOTENSION [None]
  - PULMONARY TOXICITY [None]
  - DIALYSIS [None]
  - RESPIRATORY FAILURE [None]
  - ISCHAEMIC HEPATITIS [None]
  - RENAL FAILURE ACUTE [None]
